FAERS Safety Report 15617981 (Version 2)
Quarter: 2019Q1

REPORT INFORMATION
  Report Type: Spontaneous
  Country: US (occurrence: US)
  Receive Date: 20181114
  Receipt Date: 20190121
  Transmission Date: 20190417
  Serious: No
  Sender: FDA-Public Use
  Company Number: US-ASTRAZENECA-2018SF46032

PATIENT
  Age: 61 Year
  Sex: Male

DRUGS (1)
  1. SEROQUEL [Suspect]
     Active Substance: QUETIAPINE FUMARATE
     Indication: DEPRESSION
     Dosage: 50.0MG UNKNOWN
     Route: 048

REACTIONS (19)
  - Dizziness [Unknown]
  - Weight decreased [Unknown]
  - Feeling abnormal [Unknown]
  - Nausea [Not Recovered/Not Resolved]
  - Drug abuse [Unknown]
  - Bipolar I disorder [Unknown]
  - Drug withdrawal syndrome [Not Recovered/Not Resolved]
  - Decreased appetite [Not Recovered/Not Resolved]
  - Cataract [Unknown]
  - Off label use [Unknown]
  - Weight increased [Unknown]
  - Constipation [Not Recovered/Not Resolved]
  - Intentional product misuse [Unknown]
  - Vertigo [Unknown]
  - Vision blurred [Unknown]
  - Tardive dyskinesia [Unknown]
  - Product use in unapproved indication [Unknown]
  - Gastrointestinal motility disorder [Unknown]
  - Dyspepsia [Unknown]

NARRATIVE: CASE EVENT DATE: 20180924
